FAERS Safety Report 7125691-6 (Version None)
Quarter: 2010Q4

REPORT INFORMATION
  Report Type: 
  Country: None (occurrence: None)
  Receive Date: 20101129
  Receipt Date: 20101119
  Transmission Date: 20110411
  Serious: Yes (Death)
  Sender: FDA-Public Use
  Company Number: A0882101A

PATIENT
  Age: 28 Year
  Sex: Male
  Weight: 97.7 kg

DRUGS (3)
  1. LAMICTAL [Suspect]
     Dosage: 100MG TWICE PER DAY
     Route: 048
     Dates: start: 20070305, end: 20070901
  2. DILANTIN [Concomitant]
     Dosage: 300MG AT NIGHT
     Dates: end: 20070101
  3. TETRACYCLINE [Concomitant]
     Dates: end: 20070901

REACTIONS (2)
  - COMPLETED SUICIDE [None]
  - SLEEP DISORDER [None]
